FAERS Safety Report 4616755-7 (Version None)
Quarter: 2005Q1

REPORT INFORMATION
  Report Type: 
  Country: None (occurrence: None)
  Receive Date: 20050321
  Receipt Date: 20050304
  Transmission Date: 20050727
  Serious: Yes (Other)
  Sender: FDA-Public Use
  Company Number: K200500359

PATIENT
  Sex: 0

DRUGS (1)
  1. SEPTRA [Suspect]
     Indication: PROPHYLAXIS
     Dosage: 240 MG/480 MG,QD

REACTIONS (1)
  - ANAEMIA [None]
